FAERS Safety Report 20582724 (Version 1)
Quarter: 2022Q1

REPORT INFORMATION
  Report Type: Spontaneous
  Country: US (occurrence: US)
  Receive Date: 20220311
  Receipt Date: 20220311
  Transmission Date: 20220423
  Serious: No
  Sender: FDA-Public Use
  Company Number: US-PFIZER INC-2020263288

PATIENT
  Age: 100 Year
  Sex: Female
  Weight: 63.5 kg

DRUGS (1)
  1. PREMARIN [Suspect]
     Active Substance: ESTROGENS, CONJUGATED
     Indication: Prophylaxis
     Dosage: USE A TINY BIT, 3/8 INCH OUT OF THE TUBE ONCE WEEKLY
     Route: 061
     Dates: start: 2015

REACTIONS (4)
  - Bladder disorder [Unknown]
  - Off label use [Unknown]
  - Expired product administered [Unknown]
  - Incorrect route of product administration [Unknown]
